FAERS Safety Report 9914614 (Version 1)
Quarter: 2014Q1

REPORT INFORMATION
  Report Type: Spontaneous
  Country: US (occurrence: None)
  Receive Date: 20140218
  Receipt Date: 20140218
  Transmission Date: 20141002
  Serious: Yes (Hospitalization, Other)
  Sender: FDA-Public Use
  Company Number: BD-2014-0010

PATIENT
  Sex: 0

DRUGS (1)
  1. MORPHINE SULFATE [Suspect]
     Indication: UTERINE CONTRACTIONS DURING PREGNANCY
     Dosage: 10-25 NG, UNK, IM AND/OR IV
     Route: 030

REACTIONS (2)
  - Foetal heart rate disorder [None]
  - Maternal drugs affecting foetus [None]
